APPROVED DRUG PRODUCT: AMOXAPINE
Active Ingredient: AMOXAPINE
Strength: 150MG
Dosage Form/Route: TABLET;ORAL
Application: A072421 | Product #001
Applicant: WATSON PHARMACEUTICALS INC AN INDIRECT WHOLLY OWNED SUB OF TEVA PHARMACEUTICALS USA INC
Approved: May 11, 1989 | RLD: No | RS: No | Type: DISCN